FAERS Safety Report 16751885 (Version 4)
Quarter: 2020Q3

REPORT INFORMATION
  Report Type: Report from Study
  Country: US (occurrence: US)
  Receive Date: 20190828
  Receipt Date: 20200923
  Transmission Date: 20201102
  Serious: Yes (Other)
  Sender: FDA-Public Use
  Company Number: US-INCYTE CORPORATION-2019IN008122

PATIENT

DRUGS (18)
  1. JAKAFI [Suspect]
     Active Substance: RUXOLITINIB
     Dosage: 10 MILLIGRAM, QD
     Route: 065
     Dates: start: 20190731
  2. OMEGA?3 IQ [Concomitant]
     Indication: PRODUCT USED FOR UNKNOWN INDICATION
     Dosage: 240 MILLIGRAM, CHEW
     Route: 065
     Dates: start: 20160212
  3. SIMVASTATIN. [Concomitant]
     Active Substance: SIMVASTATIN
     Indication: BLOOD CHOLESTEROL
     Dosage: 40 MILLIGRAM, QHS
     Route: 048
     Dates: start: 20161011
  4. MECLIZINE HCL [Concomitant]
     Active Substance: MECLIZINE HYDROCHLORIDE
     Indication: PRODUCT USED FOR UNKNOWN INDICATION
     Dosage: 25 MILLIGRAM, TID PRN
     Route: 048
  5. TRAMADOL HCL [Concomitant]
     Active Substance: TRAMADOL HYDROCHLORIDE
     Indication: JOINT INJURY
     Dosage: 50 MILLIGRAM, TID PRN
     Route: 048
  6. JAKAFI [Suspect]
     Active Substance: RUXOLITINIB
     Indication: POLYCYTHAEMIA VERA
     Dosage: 10 MILLIGRAM, BID
     Route: 048
     Dates: start: 20190419
  7. JAKAFI [Suspect]
     Active Substance: RUXOLITINIB
     Dosage: 10 MILLIGRAM, BID
     Route: 048
  8. JAKAFI [Suspect]
     Active Substance: RUXOLITINIB
     Dosage: 10 MILLIGRAM, QD
     Route: 048
  9. VITAMIN D                          /00107901/ [Concomitant]
     Active Substance: ERGOCALCIFEROL
     Indication: PRODUCT USED FOR UNKNOWN INDICATION
     Dosage: UNK
     Route: 065
  10. KRILL OIL [Concomitant]
     Active Substance: DIETARY SUPPLEMENT\KRILL OIL
     Indication: PRODUCT USED FOR UNKNOWN INDICATION
     Dosage: 500 MILLIGRAM
     Route: 065
  11. VALSARTAN HCTZ [Concomitant]
     Active Substance: HYDROCHLOROTHIAZIDE\VALSARTAN
     Indication: PRODUCT USED FOR UNKNOWN INDICATION
     Dosage: 160?12.5 MG, QD
     Route: 048
     Dates: start: 20170220
  12. BABY ASPIRIN [Concomitant]
     Active Substance: ASPIRIN
     Indication: PRODUCT USED FOR UNKNOWN INDICATION
     Dosage: 81 MILLIGRAM, QD
     Route: 048
     Dates: start: 20180326
  13. VITAMIN D3 [Concomitant]
     Active Substance: CHOLECALCIFEROL
     Indication: PRODUCT USED FOR UNKNOWN INDICATION
     Dosage: 125 MICROGRAM, AS DIRECTED
     Route: 048
     Dates: start: 20160212
  14. DICLOFENAC SODIUM. [Concomitant]
     Active Substance: DICLOFENAC SODIUM
     Indication: PRODUCT USED FOR UNKNOWN INDICATION
     Dosage: 75 MILLIGRAM, BID
     Route: 048
     Dates: start: 20161123
  15. OMEPRAZOLE. [Concomitant]
     Active Substance: OMEPRAZOLE
     Indication: PRODUCT USED FOR UNKNOWN INDICATION
     Dosage: 20 MILLIGRAM, QD
     Route: 048
     Dates: start: 20190904
  16. JAKAFI [Suspect]
     Active Substance: RUXOLITINIB
     Dosage: 5 MILLIGRAM, BID
     Route: 048
  17. METOPROLOL TARTRATE. [Concomitant]
     Active Substance: METOPROLOL TARTRATE
     Indication: PRODUCT USED FOR UNKNOWN INDICATION
     Dosage: 50 MILLIGRAM, 1 TAB QAM, HALF TAB PM
     Route: 048
     Dates: start: 20161104
  18. HYDROXYUREA. [Concomitant]
     Active Substance: HYDROXYUREA
     Indication: PRODUCT USED FOR UNKNOWN INDICATION
     Route: 065

REACTIONS (8)
  - Skin cancer [Unknown]
  - Platelet count increased [Unknown]
  - Transferrin saturation [Unknown]
  - Platelet count decreased [Unknown]
  - Somnolence [Unknown]
  - Blood phosphorus decreased [Unknown]
  - Serum ferritin decreased [Unknown]
  - Haemoglobin decreased [Unknown]

NARRATIVE: CASE EVENT DATE: 20190731
